FAERS Safety Report 4625657-1 (Version None)
Quarter: 2005Q1

REPORT INFORMATION
  Report Type: 
  Country: None (occurrence: None)
  Receive Date: 20050330
  Receipt Date: 20050315
  Transmission Date: 20050727
  Serious: Yes (Death, Hospitalization, Disabling)
  Sender: FDA-Public Use
  Company Number: FR_050306067

PATIENT
  Age: 66 Year
  Sex: Female

DRUGS (1)
  1. GEMZAR [Suspect]
     Indication: ADENOCARCINOMA PANCREAS
     Dosage: 1 G/M2 OTHER
     Route: 050
     Dates: start: 20010901

REACTIONS (8)
  - ANAEMIA [None]
  - BLOOD PRESSURE INCREASED [None]
  - HAEMOLYTIC URAEMIC SYNDROME [None]
  - HYPOTENSION [None]
  - MALIGNANT NEOPLASM PROGRESSION [None]
  - OEDEMA PERIPHERAL [None]
  - RENAL FAILURE [None]
  - THROMBOCYTOPENIA [None]
